FAERS Safety Report 5740931-3 (Version None)
Quarter: 2008Q2

REPORT INFORMATION
  Report Type: 
  Country: None (occurrence: None)
  Receive Date: 20080516
  Receipt Date: 20080508
  Transmission Date: 20081010
  Serious: Yes (Other)
  Sender: FDA-Public Use
  Company Number: US-PFIZER INC-2008020528

PATIENT
  Sex: Female
  Weight: 82 kg

DRUGS (1)
  1. CHANTIX [Suspect]
     Indication: SMOKING CESSATION THERAPY
     Route: 048

REACTIONS (17)
  - BACK PAIN [None]
  - BLOOD UREA NITROGEN/CREATININE RATIO INCREASED [None]
  - BODY TEMPERATURE INCREASED [None]
  - CHILLS [None]
  - DEPRESSION [None]
  - DRUG ADMINISTRATION ERROR [None]
  - EAR PAIN [None]
  - EYE PAIN [None]
  - MOOD ALTERED [None]
  - NAUSEA [None]
  - PAIN [None]
  - RENAL DISORDER [None]
  - RENAL PAIN [None]
  - STRESS [None]
  - THROAT IRRITATION [None]
  - VOMITING [None]
  - WEIGHT INCREASED [None]
